FAERS Safety Report 6371236-8 (Version None)
Quarter: 2009Q3

REPORT INFORMATION
  Report Type: 
  Country: None (occurrence: None)
  Receive Date: 20090923
  Receipt Date: 20070702
  Transmission Date: 20100115
  Serious: Yes (Other)
  Sender: FDA-Public Use
  Company Number: US-ASTRAZENECA-2006UW27669

PATIENT
  Age: 41 Year
  Sex: Female
  Weight: 50.3 kg

DRUGS (23)
  1. SEROQUEL [Suspect]
     Indication: SCHIZOPHRENIA
     Dosage: 100-400 MG, 25-300 MG
     Route: 048
     Dates: start: 19991102
  2. SEROQUEL [Suspect]
     Indication: DELUSIONAL DISORDER, PERSECUTORY TYPE
     Dosage: 100-400 MG, 25-300 MG
     Route: 048
     Dates: start: 19991102
  3. SEROQUEL [Suspect]
     Indication: INSOMNIA
     Dosage: 100-400 MG, 25-300 MG
     Route: 048
     Dates: start: 19991102
  4. SEROQUEL [Suspect]
     Indication: HALLUCINATION
     Dosage: 100-400 MG, 25-300 MG
     Route: 048
     Dates: start: 19991102
  5. SEROQUEL [Suspect]
     Indication: ANXIETY
     Dosage: 100-400 MG, 25-300 MG
     Route: 048
     Dates: start: 19991102
  6. ABILIFY [Suspect]
     Dosage: 15-20 MG
     Dates: start: 20051021
  7. ABILIFY [Suspect]
     Dates: start: 20050101
  8. ZYPREXA [Suspect]
     Dosage: 7.5-15 MG
     Dates: start: 19991102
  9. ZYPREXA [Suspect]
  10. GEODON [Concomitant]
  11. HALDOL [Concomitant]
     Dates: start: 19960101
  12. RISPERDAL [Concomitant]
     Dates: start: 19960101
  13. PROZAC [Concomitant]
  14. CATAPRES [Concomitant]
     Dates: start: 20051021
  15. EFFEXOR XR [Concomitant]
     Dosage: 37.5-75 MG
     Dates: start: 20031217
  16. PROTONIX [Concomitant]
     Dates: start: 20031217
  17. CELEBREX [Concomitant]
     Dates: start: 20031217
  18. VASOTEC [Concomitant]
     Dosage: 5-10 MG
     Dates: start: 20031217
  19. DESYREL [Concomitant]
     Dates: start: 20031217
  20. ATIVAN [Concomitant]
     Dates: start: 20040212
  21. NORVASC [Concomitant]
     Dates: start: 20040212
  22. HYDROCHLOROTHIAZIDE [Concomitant]
     Dates: start: 20031217
  23. REVIA [Concomitant]
     Dates: start: 20040212

REACTIONS (3)
  - DIABETES MELLITUS [None]
  - DIABETES MELLITUS INADEQUATE CONTROL [None]
  - TYPE 2 DIABETES MELLITUS [None]
